FAERS Safety Report 12827855 (Version 1)
Quarter: 2016Q4

REPORT INFORMATION
  Report Type: Spontaneous
  Country: US (occurrence: US)
  Receive Date: 20161007
  Receipt Date: 20161007
  Transmission Date: 20170207
  Serious: Yes (Hospitalization)
  Sender: FDA-Public Use
  Company Number: US-OTSUKA-2016_023447

PATIENT
  Sex: Male

DRUGS (1)
  1. SAMSCA [Suspect]
     Active Substance: TOLVAPTAN
     Indication: BLOOD SODIUM DECREASED
     Dosage: UNK
     Route: 065
     Dates: start: 2016

REACTIONS (4)
  - Oropharyngeal pain [Unknown]
  - Initial insomnia [Unknown]
  - Blood electrolytes abnormal [Unknown]
  - Visual acuity reduced [Not Recovered/Not Resolved]
